FAERS Safety Report 5386156-5 (Version None)
Quarter: 2007Q3

REPORT INFORMATION
  Report Type: 
  Country: None (occurrence: None)
  Receive Date: 20070713
  Receipt Date: 20070706
  Transmission Date: 20080115
  Serious: Yes (Other)
  Sender: FDA-Public Use
  Company Number: CH-BAYER-200713743GDS

PATIENT
  Age: 58 Year
  Sex: Male
  Weight: 74 kg

DRUGS (5)
  1. VARDENAFIL [Suspect]
     Indication: ERECTILE DYSFUNCTION
     Route: 048
     Dates: start: 20070524, end: 20070527
  2. LEVODOPA/BENSERAZIDE [Concomitant]
     Indication: PARKINSON'S DISEASE
     Route: 048
  3. LEVODOPA/BENSERAZIDE [Concomitant]
     Route: 048
  4. CABERGOLINE [Concomitant]
     Indication: PARKINSON'S DISEASE
     Dosage: TOTAL DAILY DOSE: 6 MG
     Route: 048
  5. AMITRIPTYLINE HCL [Concomitant]
     Indication: DRUG USE FOR UNKNOWN INDICATION
     Route: 048

REACTIONS (1)
  - PARKINSONISM [None]
